FAERS Safety Report 13390495 (Version 1)
Quarter: 2017Q1

REPORT INFORMATION
  Report Type: Spontaneous
  Country: US (occurrence: US)
  Receive Date: 20170331
  Receipt Date: 20170331
  Transmission Date: 20170429
  Serious: No
  Sender: FDA-Public Use
  Company Number: US-PFIZER INC-2017132027

PATIENT
  Age: 68 Year
  Sex: Female
  Weight: 54 kg

DRUGS (3)
  1. AROMASIN [Suspect]
     Active Substance: EXEMESTANE
     Indication: LOBULAR BREAST CARCINOMA IN SITU
     Dosage: 25 MG, DAILY
     Route: 048
     Dates: start: 201609
  2. EXEMESTANE. [Suspect]
     Active Substance: EXEMESTANE
     Indication: LOBULAR BREAST CARCINOMA IN SITU
     Dosage: 25 MG, DAILY
     Route: 048
     Dates: start: 201609
  3. METHIMAZOLE. [Concomitant]
     Active Substance: METHIMAZOLE
     Indication: HYPERTHYROIDISM
     Dosage: 5 MG, WEEKLY,

REACTIONS (6)
  - Abdominal pain [Unknown]
  - Vision blurred [Unknown]
  - Alopecia [Unknown]
  - Diarrhoea [Unknown]
  - Visual acuity reduced [Unknown]
  - Condition aggravated [Unknown]
